FAERS Safety Report 4408315-8 (Version None)
Quarter: 2004Q3

REPORT INFORMATION
  Report Type: 
  Country: None (occurrence: None)
  Receive Date: 20040723
  Receipt Date: 20040723
  Transmission Date: 20050211
  Serious: Yes (Hospitalization)
  Sender: FDA-Public Use
  Company Number: None

PATIENT
  Age: 44 Year
  Sex: Male
  Weight: 56 kg

DRUGS (1)
  1. INDINAVIR 400MG MERCK [Suspect]
     Indication: HIV INFECTION
     Dosage: 800 MG EVERY 8 HO ORAL
     Route: 048
     Dates: start: 20040323, end: 20040504

REACTIONS (1)
  - NEPHROLITHIASIS [None]
